APPROVED DRUG PRODUCT: VILAZODONE HYDROCHLORIDE
Active Ingredient: VILAZODONE HYDROCHLORIDE
Strength: 40MG
Dosage Form/Route: TABLET;ORAL
Application: A208212 | Product #003 | TE Code: AB
Applicant: TEVA PHARMACEUTICALS USA
Approved: Sep 30, 2019 | RLD: No | RS: No | Type: RX